FAERS Safety Report 14355852 (Version 1)
Quarter: 2018Q1

REPORT INFORMATION
  Report Type: Spontaneous
  Country: US (occurrence: US)
  Receive Date: 20180105
  Receipt Date: 20180105
  Transmission Date: 20180509
  Serious: No
  Sender: FDA-Public Use
  Company Number: US-PFIZER INC-2018001478

PATIENT
  Sex: Female

DRUGS (2)
  1. DOXEPIN HCL [Suspect]
     Active Substance: DOXEPIN HYDROCHLORIDE
     Dosage: UNK
  2. TRAMADOL. [Interacting]
     Active Substance: TRAMADOL
     Dosage: UNK

REACTIONS (3)
  - Confusional state [Unknown]
  - Dizziness [Unknown]
  - Drug interaction [Unknown]
